FAERS Safety Report 14510003 (Version 1)
Quarter: 2018Q1

REPORT INFORMATION
  Report Type: Spontaneous
  Country: CA (occurrence: CA)
  Receive Date: 20180209
  Receipt Date: 20180209
  Transmission Date: 20180509
  Serious: Yes (Other)
  Sender: FDA-Public Use
  Company Number: CA-BAYER-2018-020128

PATIENT
  Sex: Male

DRUGS (5)
  1. EZETROL [Suspect]
     Active Substance: EZETIMIBE
     Route: 048
  2. PERINDOPRIL ARGININE [Suspect]
     Active Substance: PERINDOPRIL ARGININE
  3. ASPIRIN. [Suspect]
     Active Substance: ASPIRIN
  4. ATENOLOL AND CHLORTHALIDONE [Suspect]
     Active Substance: ATENOLOL\CHLORTHALIDONE
  5. IMMUNOGLOBULIN [IMMUNOGLOBULIN] IV [Suspect]
     Active Substance: HUMAN IMMUNOGLOBULIN G
     Indication: IMMUNODEFICIENCY COMMON VARIABLE
     Dosage: 16 G, OW
     Route: 058

REACTIONS (2)
  - Drug ineffective [Unknown]
  - Malaise [Unknown]
